FAERS Safety Report 18490288 (Version 2)
Quarter: 2020Q4

REPORT INFORMATION
  Report Type: Spontaneous
  Country: DE (occurrence: DE)
  Receive Date: 20201111
  Receipt Date: 20201123
  Transmission Date: 20210114
  Serious: Yes (Hospitalization)
  Sender: FDA-Public Use
  Company Number: DE-TEVA-2020-DE-1846210

PATIENT
  Age: 33 Year
  Sex: Female
  Weight: 68 kg

DRUGS (4)
  1. PROPOFOL. [Suspect]
     Active Substance: PROPOFOL
     Indication: INDUCTION AND MAINTENANCE OF ANAESTHESIA
     Dosage: INDUCTION
     Route: 041
  2. SUFENTANIL [Suspect]
     Active Substance: SUFENTANIL
     Dosage: MAINTENANCE
     Route: 042
  3. PROPOFOL. [Suspect]
     Active Substance: PROPOFOL
     Dosage: MAINTENANCE
     Route: 041
  4. SUFENTANIL [Suspect]
     Active Substance: SUFENTANIL
     Indication: INDUCTION AND MAINTENANCE OF ANAESTHESIA
     Dosage: INDUCTION
     Route: 042

REACTIONS (3)
  - Loss of consciousness [Unknown]
  - Tachycardia [Unknown]
  - Pyrexia [Unknown]
